FAERS Safety Report 8626244 (Version 3)
Quarter: 2012Q4

REPORT INFORMATION
  Report Type: 
  Country: US (occurrence: US)
  Receive Date: 20120620
  Receipt Date: 20120906
  Transmission Date: 20130627
  Serious: Yes (Hospitalization, Disabling, Other)
  Sender: FDA-Public Use
  Company Number: US-CELGENEUS-163-21880-12050816

PATIENT
  Age: 62 None
  Sex: Female

DRUGS (3)
  1. REVLIMID [Suspect]
     Indication: MULTIPLE MYELOMA
     Dosage: 10 Milligram
     Route: 048
     Dates: start: 201009, end: 201204
  2. NEUPOGEN [Concomitant]
     Indication: DRUG USE FOR UNKNOWN INDICATION
     Dosage: 480
     Route: 065
  3. NEULASTA [Concomitant]
     Indication: DRUG USE FOR UNKNOWN INDICATION
     Dosage: 6
     Route: 065

REACTIONS (3)
  - Anaplastic large cell lymphoma T- and null-cell types [Recovering/Resolving]
  - Osteomyelitis [Recovering/Resolving]
  - Nerve injury [Not Recovered/Not Resolved]
